FAERS Safety Report 16873004 (Version 1)
Quarter: 2019Q4

REPORT INFORMATION
  Report Type: Spontaneous
  Country: FR (occurrence: FR)
  Receive Date: 20191001
  Receipt Date: 20191001
  Transmission Date: 20200122
  Serious: Yes (Hospitalization)
  Sender: FDA-Public Use
  Company Number: FR-AUROBINDO-AUR-APL-2019-057451

PATIENT
  Age: 80 Year
  Sex: Male
  Weight: 74 kg

DRUGS (3)
  1. AMIODARONE [Suspect]
     Active Substance: AMIODARONE
     Indication: ARRHYTHMIA
     Dosage: 200 MILLIGRAM, ONCE A DAY
     Route: 065
     Dates: start: 20180617
  2. IMBRUVICA [Suspect]
     Active Substance: IBRUTINIB
     Dosage: 420 MILLIGRAM, ONCE A DAY
     Route: 048
     Dates: start: 20171221
  3. IMBRUVICA [Suspect]
     Active Substance: IBRUTINIB
     Indication: CHRONIC LYMPHOCYTIC LEUKAEMIA
     Dosage: UNK
     Route: 048

REACTIONS (11)
  - Atrial flutter [Recovered/Resolved]
  - Dyspnoea [Recovered/Resolved]
  - Hyperthermia [Recovered/Resolved]
  - Iodine uptake abnormal [Recovered/Resolved]
  - Hyperthyroidism [Recovered/Resolved]
  - Blood thyroid stimulating hormone increased [Unknown]
  - Cardiac disorder [Recovered/Resolved]
  - Thyroxine increased [Unknown]
  - Coma scale abnormal [Recovered/Resolved]
  - Tachycardia [Unknown]
  - Thyrotoxic crisis [Recovered/Resolved]

NARRATIVE: CASE EVENT DATE: 20180627
